FAERS Safety Report 25932579 (Version 2)
Quarter: 2025Q4

REPORT INFORMATION
  Report Type: Report from Study
  Country: EU (occurrence: EU)
  Receive Date: 20251017
  Receipt Date: 20251030
  Transmission Date: 20260118
  Serious: No
  Sender: JOHNSON AND JOHNSON
  Company Number: EU-JNJFOC-20230631309

PATIENT
  Age: 24 Year
  Sex: Male

DRUGS (4)
  1. GUSELKUMAB [Suspect]
     Active Substance: GUSELKUMAB
     Indication: Psoriasis
     Route: 065
     Dates: start: 20220304, end: 20230919
  2. GUSELKUMAB [Suspect]
     Active Substance: GUSELKUMAB
     Dates: start: 20220304, end: 20241121
  3. GUSELKUMAB [Suspect]
     Active Substance: GUSELKUMAB
     Route: 065
     Dates: start: 20220304, end: 20250130
  4. GUSELKUMAB [Suspect]
     Active Substance: GUSELKUMAB

REACTIONS (1)
  - Hepatic steatosis [Unknown]

NARRATIVE: CASE EVENT DATE: 20230519
